FAERS Safety Report 8255063-2 (Version None)
Quarter: 2012Q1

REPORT INFORMATION
  Report Type: 
  Country: None (occurrence: None)
  Receive Date: 20120329
  Receipt Date: 20120326
  Transmission Date: 20120608
  Serious: Yes (Hospitalization)
  Sender: FDA-Public Use
  Company Number: A0971098A

PATIENT
  Age: 25 Year
  Sex: Male

DRUGS (1)
  1. ASPIRIN + CAFFEINE + PARACETAMOL (FORMULATION UNKNOWN) (ACETAMINOPHEN [Suspect]
     Indication: HEADACHE
     Dosage: 1 PACKAGE/TWICE PER DAY

REACTIONS (7)
  - NAUSEA [None]
  - LABORATORY TEST ABNORMAL [None]
  - FAECES DISCOLOURED [None]
  - GASTRITIS EROSIVE [None]
  - HYPERHIDROSIS [None]
  - GASTRIC HAEMORRHAGE [None]
  - DIZZINESS [None]
